FAERS Safety Report 6329412-6 (Version None)
Quarter: 2009Q3

REPORT INFORMATION
  Report Type: 
  Country: None (occurrence: None)
  Receive Date: 20090826
  Receipt Date: 20090819
  Transmission Date: 20100115
  Serious: Yes (Death, Hospitalization)
  Sender: FDA-Public Use
  Company Number: A0803849A

PATIENT
  Age: 48 Year
  Sex: Female

DRUGS (1)
  1. TYKERB [Suspect]
     Dosage: 250MG FIVE TIMES PER DAY
     Route: 048
     Dates: start: 20080701

REACTIONS (3)
  - DEEP VEIN THROMBOSIS [None]
  - LEUKOPENIA [None]
  - PNEUMONIA [None]
